FAERS Safety Report 9376143 (Version 1)
Quarter: 2013Q2

REPORT INFORMATION
  Report Type: Spontaneous
  Country: US (occurrence: None)
  Receive Date: 20130628
  Receipt Date: 20130628
  Transmission Date: 20140414
  Serious: No
  Sender: FDA-Public Use
  Company Number: None

PATIENT
  Age: 74 Year
  Sex: Female

DRUGS (10)
  1. PROLIA [Suspect]
     Indication: OSTEOPOROSIS
     Dosage: INJECTION DEC 2010  JUL 2011
     Dates: start: 201012, end: 201107
  2. JANUVIA [Concomitant]
  3. GLYBIDE [Concomitant]
  4. MET NEXIUM [Concomitant]
  5. LIPITOR [Concomitant]
  6. AMODIBINE [Concomitant]
  7. FISH OIL [Concomitant]
  8. CALCIUM D [Concomitant]
  9. ASPIRIN [Concomitant]
  10. LARGINONE L ORNTHINE [Concomitant]

REACTIONS (3)
  - Loss of control of legs [None]
  - Fungal infection [None]
  - Abscess [None]
